FAERS Safety Report 4597332-3 (Version None)
Quarter: 2005Q1

REPORT INFORMATION
  Report Type: 
  Country: None (occurrence: None)
  Receive Date: 20050225
  Receipt Date: 20050225
  Transmission Date: 20050727
  Serious: Yes (Other)
  Sender: FDA-Public Use
  Company Number: None

PATIENT
  Age: 33 Year
  Sex: Female
  Weight: 117.9352 kg

DRUGS (1)
  1. LEVAQUIN [Suspect]
     Indication: SINUSITIS
     Dosage: 500MG   ONCE DAILY ORAL
     Route: 048
     Dates: start: 20050222, end: 20050224

REACTIONS (5)
  - ANXIETY [None]
  - HALLUCINATION [None]
  - INSOMNIA [None]
  - MIGRAINE [None]
  - PALPITATIONS [None]
